FAERS Safety Report 8979396 (Version 1)
Quarter: 2012Q4

REPORT INFORMATION
  Report Type: 
  Country: US (occurrence: US)
  Receive Date: 20121221
  Receipt Date: 20121221
  Transmission Date: 20130627
  Serious: Yes (Hospitalization)
  Sender: FDA-Public Use
  Company Number: US-PFIZER INC-2012318660

PATIENT

DRUGS (8)
  1. SUNITINIB MALATE [Suspect]
     Indication: PROSTATE CANCER METASTATIC
     Dosage: 37.5 mg, daily
     Route: 048
     Dates: start: 20120928
  2. ABIRATERONE ACETATE [Suspect]
     Indication: PROSTATE CANCER METASTATIC
     Dosage: 1000 mg, daily
     Route: 048
     Dates: start: 20111218
  3. CENTRUM SILVER [Concomitant]
     Dosage: 1 tablet, daily
     Route: 048
  4. CALTRATE [Concomitant]
     Dosage: 600 mg, daily
     Route: 048
  5. X-GEVA [Concomitant]
     Dosage: 120 mg, monthly
     Route: 058
  6. ELIGARD [Concomitant]
     Dosage: 45 mg, every 6 months
     Route: 030
  7. PREDNISONE [Concomitant]
     Dosage: 5 mg, 2x/day
     Route: 048
  8. NORVASC [Concomitant]
     Dosage: 5 mg, daily
     Route: 048

REACTIONS (1)
  - Pneumonia [Unknown]
